FAERS Safety Report 23938861 (Version 1)
Quarter: 2024Q2

REPORT INFORMATION
  Report Type: Spontaneous
  Country: US (occurrence: US)
  Receive Date: 20240604
  Receipt Date: 20240604
  Transmission Date: 20240716
  Serious: No
  Sender: FDA-Public Use
  Company Number: US-PERRIGO-23US008524

PATIENT
  Age: 41 Year
  Sex: Female
  Weight: 56.689 kg

DRUGS (2)
  1. MICONAZOLE NITRATE [Suspect]
     Active Substance: MICONAZOLE NITRATE
     Indication: Vulvovaginal pruritus
     Dosage: FINGERTIP AMOUNT, QD
     Route: 061
     Dates: start: 202303, end: 202303
  2. MICONAZOLE NITRATE [Suspect]
     Active Substance: MICONAZOLE NITRATE
     Indication: Vulvovaginal mycotic infection
     Dosage: FINGERTIP AMOUNT, QD
     Route: 067
     Dates: start: 20230722, end: 20230725

REACTIONS (2)
  - Vulvovaginal burning sensation [Recovering/Resolving]
  - Incorrect route of product administration [Unknown]

NARRATIVE: CASE EVENT DATE: 20230622
